FAERS Safety Report 11209118 (Version 3)
Quarter: 2023Q1

REPORT INFORMATION
  Report Type: Spontaneous
  Country: ES (occurrence: ES)
  Receive Date: 20150622
  Receipt Date: 20230120
  Transmission Date: 20230417
  Serious: Yes (Hospitalization, Other)
  Sender: FDA-Public Use
  Company Number: PHHY2015ES073477

PATIENT
  Age: 45 Year
  Sex: Male

DRUGS (1)
  1. METHOTREXATE [Suspect]
     Active Substance: METHOTREXATE
     Indication: Psoriasis
     Dosage: 10 MG, QD
     Route: 048

REACTIONS (6)
  - Bicytopenia [Recovered/Resolved]
  - Psoriasis [Unknown]
  - Condition aggravated [Unknown]
  - Accidental overdose [Unknown]
  - Toxicity to various agents [Recovered/Resolved]
  - Incorrect dose administered [Unknown]
